FAERS Safety Report 7345207-9 (Version None)
Quarter: 2011Q1

REPORT INFORMATION
  Report Type: 
  Country: None (occurrence: None)
  Receive Date: 20110310
  Receipt Date: 20110304
  Transmission Date: 20110831
  Serious: Yes (Life-Threatening, Hospitalization)
  Sender: FDA-Public Use
  Company Number: FR-CELGENEUS-056-C5013-11010100

PATIENT
  Sex: Female
  Weight: 48 kg

DRUGS (11)
  1. DEXAMETHASONE [Suspect]
     Dosage: 20 MILLIGRAM
     Route: 065
     Dates: start: 20101217, end: 20101231
  2. ARIXTRA [Concomitant]
     Indication: THROMBOSIS PROPHYLAXIS
     Dosage: 2.5 MILLIGRAM
     Route: 058
     Dates: start: 20090729, end: 20101231
  3. FENTANYL [Concomitant]
     Route: 062
  4. ATACAND [Concomitant]
     Dosage: 4 MILLIGRAM
     Route: 048
  5. CC-5013 [Suspect]
     Dosage: 25 MILLIGRAM
     Route: 048
     Dates: start: 20101217, end: 20101231
  6. DEXAMETHASONE [Suspect]
     Indication: MULTIPLE MYELOMA
     Dosage: 20 MILLIGRAM
     Route: 065
     Dates: start: 20090729
  7. CC-5013 [Suspect]
     Indication: MULTIPLE MYELOMA
     Dosage: 25 MILLIGRAM
     Route: 048
     Dates: start: 20090729
  8. PHENOXYMETHYL PENICILLIN [Concomitant]
     Dosage: 1 MILLION UNITS
     Route: 065
     Dates: start: 20110101
  9. PRAVASTATIN SODIUM [Concomitant]
     Dosage: .5 DOSAGE FORMS
     Route: 048
  10. OMEPRAZOLE [Concomitant]
     Dosage: 20 MILLIGRAM
     Route: 065
     Dates: start: 20110101
  11. ZELITREX [Concomitant]
     Dosage: 50
     Route: 065
     Dates: start: 20110101

REACTIONS (2)
  - LUNG ADENOCARCINOMA [None]
  - HAEMOPTYSIS [None]
